FAERS Safety Report 5669346-3 (Version None)
Quarter: 2008Q1

REPORT INFORMATION
  Report Type: 
  Country: None (occurrence: None)
  Receive Date: 20080317
  Receipt Date: 20080306
  Transmission Date: 20080703
  Serious: Yes (Hospitalization)
  Sender: FDA-Public Use
  Company Number: PHBS2008US03080

PATIENT
  Age: 26 Year
  Sex: Female

DRUGS (3)
  1. DICLOFENAC [Suspect]
     Indication: PANCREATITIS ACUTE
  2. KETOROLAC TROMETHAMINE [Suspect]
  3. METAMIZOLE [Suspect]

REACTIONS (14)
  - ABORTION INDUCED [None]
  - AXONAL NEUROPATHY [None]
  - BULBAR PALSY [None]
  - DRUG EXPOSURE DURING PREGNANCY [None]
  - DYSPNOEA [None]
  - EMOTIONAL DISORDER [None]
  - EPILEPSY [None]
  - METRORRHAGIA [None]
  - POLYNEUROPATHY [None]
  - PORPHYRIA [None]
  - PSYCHOTIC DISORDER [None]
  - QUADRIPLEGIA [None]
  - URINE DELTA AMINOLEVULINATE INCREASED [None]
  - URINE PORPHOBILINOGEN INCREASED [None]
